FAERS Safety Report 21164729 (Version 2)
Quarter: 2022Q3

REPORT INFORMATION
  Report Type: Spontaneous
  Country: FR (occurrence: FR)
  Receive Date: 20220803
  Receipt Date: 20220822
  Transmission Date: 20221027
  Serious: Yes (Other)
  Sender: FDA-Public Use
  Company Number: FR-EMA-DD-20200117-kumarvn_p-084257

PATIENT
  Age: 24 Year
  Sex: Male

DRUGS (16)
  1. VALGANCICLOVIR [Suspect]
     Active Substance: VALGANCICLOVIR
     Indication: Prophylaxis
     Dosage: 900 MILLIGRAM, QD (900 MILLIGRAM, ONCE A DAY (QD))
     Route: 048
     Dates: start: 20190719, end: 20190731
  2. TOBRAMYCIN [Suspect]
     Active Substance: TOBRAMYCIN
     Indication: Pneumonia
     Dosage: 200 MILLIGRAM, QD
     Route: 042
     Dates: start: 20190715, end: 20190722
  3. TOBRAMYCIN [Suspect]
     Active Substance: TOBRAMYCIN
     Indication: Bacteraemia
     Dosage: 200 MILLIGRAM, QD
     Route: 042
     Dates: start: 20190716, end: 20190722
  4. TOBRAMYCIN [Suspect]
     Active Substance: TOBRAMYCIN
     Dosage: 2 DOSAGE FORM, QD (1 AMPOULE, BID
     Route: 042
     Dates: start: 20190716
  5. VORICONAZOLE [Suspect]
     Active Substance: VORICONAZOLE
     Indication: Prophylaxis
     Dosage: 1 OT, QD (200 (UNITS NOT REPORTED), ONCE A DAY (QD)
     Route: 042
     Dates: start: 20190718, end: 20190731
  6. CEFTOLOZANE SULFATE\TAZOBACTAM SODIUM [Suspect]
     Active Substance: CEFTOLOZANE SULFATE\TAZOBACTAM SODIUM
     Indication: Bacteraemia
     Dosage: 2 GRAM, TID
     Route: 042
     Dates: start: 20190719, end: 20190729
  7. CEFTOLOZANE SULFATE\TAZOBACTAM SODIUM [Suspect]
     Active Substance: CEFTOLOZANE SULFATE\TAZOBACTAM SODIUM
     Indication: Pneumonia
     Dosage: 3 DOSAGE FORM, QD (1 G/ 0.5 G, 3 TIME/ 24 HOURS)
     Route: 042
     Dates: start: 20190729, end: 20190731
  8. BACTRIM [Suspect]
     Active Substance: SULFAMETHOXAZOLE\TRIMETHOPRIM
     Indication: Prophylaxis
     Dosage: 3 DOSAGE FORM EVERY WEEK (1 TABLET, THREE TIMES A WEEK)
     Route: 048
     Dates: start: 20190725, end: 20190731
  9. SKENAN [Concomitant]
     Active Substance: MORPHINE SULFATE
     Indication: Pain prophylaxis
     Dosage: 1 OT, QD
     Route: 048
  10. CELLCEPT [Concomitant]
     Active Substance: MYCOPHENOLATE MOFETIL
     Indication: Prophylaxis against transplant rejection
     Dosage: 700 MILLIGRAM, BID (1400 MG, QD (700 MILLIGRAM, TWO TIMES A DAY (BID))
     Route: 065
  11. FUROSEMIDE [Concomitant]
     Active Substance: FUROSEMIDE
     Indication: Supportive care
     Dosage: 20 MILLIGRAM, QD
     Route: 048
     Dates: end: 20190801
  12. PROGRAF [Concomitant]
     Active Substance: TACROLIMUS
     Indication: Prophylaxis against transplant rejection
     Dosage: 1 MILLIGRAM, BID (2 MG, QD (1 MILLIGRAM, TWO TIMES A DAY (BID))
     Route: 060
  13. PROGRAF [Concomitant]
     Active Substance: TACROLIMUS
     Dosage: 1 MILLIGRAM, BID (2 MG, QD (1 MILLIGRAM, TWO TIMES A DAY (BID))
     Route: 060
  14. PREDNISONE [Concomitant]
     Active Substance: PREDNISONE
     Indication: Antiinflammatory therapy
     Dosage: 20 MILLIGRAM, QD
     Route: 048
  15. COLISTIN [Concomitant]
     Active Substance: COLISTIN
     Indication: Product used for unknown indication
     Dosage: 2 DOSAGE FORM, TID (6 DF, QD (2 MUI, TID))
     Route: 065
     Dates: start: 20190717
  16. CALCIPARINE [Concomitant]
     Active Substance: HEPARIN CALCIUM
     Indication: Thrombosis prophylaxis
     Dosage: 0.5 MILLILITER, BID ( (1 ML, QD (0.5 MILLILITER, TWO TIMES A DAY (BID))
     Route: 065
     Dates: start: 20190718, end: 20190801

REACTIONS (4)
  - Off label use [Unknown]
  - Renal impairment [Recovering/Resolving]
  - Overdose [Unknown]
  - Intentional product use issue [Unknown]

NARRATIVE: CASE EVENT DATE: 20190719
